FAERS Safety Report 19761452 (Version 1)
Quarter: 2021Q3

REPORT INFORMATION
  Report Type: Spontaneous
  Country: HR (occurrence: HR)
  Receive Date: 20210830
  Receipt Date: 20210830
  Transmission Date: 20211014
  Serious: Yes (Other)
  Sender: FDA-Public Use
  Company Number: HR-VIIV HEALTHCARE LIMITED-HR2021EME179040

PATIENT

DRUGS (1)
  1. DOVATO [Suspect]
     Active Substance: DOLUTEGRAVIR SODIUM\LAMIVUDINE
     Indication: ANTIRETROVIRAL THERAPY
     Dosage: UNK

REACTIONS (6)
  - Myocardial infarction [Unknown]
  - Renal cancer [Unknown]
  - Gastric cancer [Unknown]
  - Cerebrovascular accident [Unknown]
  - Lung neoplasm malignant [Unknown]
  - Diabetes mellitus [Unknown]
